FAERS Safety Report 16737192 (Version 1)
Quarter: 2019Q3

REPORT INFORMATION
  Report Type: Report from Study
  Country: US (occurrence: US)
  Receive Date: 20190823
  Receipt Date: 20190823
  Transmission Date: 20191005
  Serious: Yes (Other)
  Sender: FDA-Public Use
  Company Number: US-JNJFOC-20190816301

PATIENT

DRUGS (2)
  1. RISPERDAL [Suspect]
     Active Substance: RISPERIDONE
     Indication: ATTENTION DEFICIT/HYPERACTIVITY DISORDER
     Route: 065
  2. HALOPERIDOL. [Suspect]
     Active Substance: HALOPERIDOL
     Indication: ATTENTION DEFICIT/HYPERACTIVITY DISORDER
     Route: 065

REACTIONS (5)
  - Suicidal ideation [Unknown]
  - Neurodevelopmental disorder [Unknown]
  - Drug ineffective for unapproved indication [Unknown]
  - Product use in unapproved indication [Unknown]
  - Off label use [Unknown]
